FAERS Safety Report 5492597-8 (Version None)
Quarter: 2007Q4

REPORT INFORMATION
  Report Type: 
  Country: None (occurrence: None)
  Receive Date: 20071022
  Receipt Date: 20071010
  Transmission Date: 20080405
  Serious: Yes (Other)
  Sender: FDA-Public Use
  Company Number: US-PFIZER INC-2007086138

PATIENT
  Sex: Female
  Weight: 70.3 kg

DRUGS (5)
  1. CHANTIX [Suspect]
     Indication: SMOKING CESSATION THERAPY
  2. VITAMIN CAP [Concomitant]
  3. ANALGESICS [Concomitant]
  4. PERCOCET [Concomitant]
  5. NAPROXEN [Concomitant]

REACTIONS (5)
  - CONVULSION [None]
  - FALL [None]
  - GENERAL PHYSICAL HEALTH DETERIORATION [None]
  - HEAD INJURY [None]
  - LOSS OF CONSCIOUSNESS [None]
